FAERS Safety Report 21841342 (Version 3)
Quarter: 2023Q1

REPORT INFORMATION
  Report Type: Report from Study
  Country: BR (occurrence: BR)
  Receive Date: 20230110
  Receipt Date: 20230223
  Transmission Date: 20230417
  Serious: Yes (Other)
  Sender: FDA-Public Use
  Company Number: BR-ABBVIE-4262362

PATIENT
  Sex: Female
  Weight: 78 kg

DRUGS (2)
  1. RINVOQ [Suspect]
     Active Substance: UPADACITINIB
     Indication: Rheumatoid arthritis
     Dosage: 1 TABLET
     Route: 048
     Dates: start: 20210523, end: 20221117
  2. PREDNISONE [Concomitant]
     Active Substance: PREDNISONE
     Indication: General symptom
     Dosage: 1 TABLET
     Route: 048

REACTIONS (12)
  - Fracture [Unknown]
  - Mobility decreased [Unknown]
  - Myalgia [Unknown]
  - Pain in extremity [Unknown]
  - Tendon pain [Unknown]
  - Arthralgia [Unknown]
  - Finger deformity [Unknown]
  - Knee deformity [Unknown]
  - Pain [Not Recovered/Not Resolved]
  - Gait disturbance [Not Recovered/Not Resolved]
  - Hand deformity [Not Recovered/Not Resolved]
  - Bone deformity [Not Recovered/Not Resolved]
